FAERS Safety Report 8901451 (Version 8)
Quarter: 2015Q1

REPORT INFORMATION
  Report Type: Spontaneous
  Country: US (occurrence: US)
  Receive Date: 20121108
  Receipt Date: 20150109
  Transmission Date: 20150721
  Serious: Yes (Hospitalization, Disabling, Other)
  Sender: FDA-Public Use
  Company Number: US-009507513-1211USA002753

PATIENT
  Sex: Female
  Weight: 58.96 kg

DRUGS (6)
  1. FOSAMAX [Suspect]
     Active Substance: ALENDRONATE SODIUM
     Dosage: UNK
     Route: 048
     Dates: start: 20110214, end: 20110508
  2. ALENDRONATE SODIUM. [Suspect]
     Active Substance: ALENDRONATE SODIUM
     Dosage: 70 MG, UNK
     Route: 048
     Dates: start: 200912
  3. FOSAMAX [Suspect]
     Active Substance: ALENDRONATE SODIUM
     Indication: OSTEOPENIA
     Dosage: 1 TAB DAILY
     Route: 048
  4. FOSAMAX [Suspect]
     Active Substance: ALENDRONATE SODIUM
     Indication: OSTEOPOROSIS
     Dosage: 1 TAB WEEKLY
     Route: 048
  5. FOSAMAX [Suspect]
     Active Substance: ALENDRONATE SODIUM
     Dosage: 5 MG, UNK
     Route: 048
     Dates: start: 19951001, end: 20050101
  6. FOSAMAX [Suspect]
     Active Substance: ALENDRONATE SODIUM
     Dosage: 70 MG, UNK
     Route: 048
     Dates: end: 20050101

REACTIONS (35)
  - Femur fracture [Unknown]
  - Intramedullary rod insertion [Unknown]
  - Stress fracture [Recovered/Resolved]
  - Femur fracture [Unknown]
  - Foot operation [Unknown]
  - Knee operation [Unknown]
  - Hypoalbuminaemia [Unknown]
  - Foot fracture [Unknown]
  - Sciatica [Unknown]
  - Hiatus hernia [Unknown]
  - Dyspnoea [Unknown]
  - Osteoporosis [Not Recovered/Not Resolved]
  - Osteoarthritis [Unknown]
  - Ankle fracture [Unknown]
  - Femur fracture [Recovered/Resolved]
  - Atrial fibrillation [Recovered/Resolved]
  - Monarthritis [Unknown]
  - Cystopexy [Unknown]
  - Skin abrasion [Unknown]
  - Procedural nausea [Recovered/Resolved]
  - Anaemia [Unknown]
  - Hypocalcaemia [Recovered/Resolved]
  - Fall [Unknown]
  - Anaemia [Recovered/Resolved]
  - Stress fracture [Not Recovered/Not Resolved]
  - Low turnover osteopathy [Not Recovered/Not Resolved]
  - Contusion [Unknown]
  - Thrombocytopenia [Unknown]
  - Intramedullary rod insertion [Recovered/Resolved]
  - Femur fracture [Not Recovered/Not Resolved]
  - Cataract operation [Unknown]
  - Tonsillectomy [Unknown]
  - Chest pain [Unknown]
  - Hypotension [Recovered/Resolved]
  - Hypocalcaemia [Unknown]

NARRATIVE: CASE EVENT DATE: 2000
